FAERS Safety Report 10561257 (Version 1)
Quarter: 2014Q4

REPORT INFORMATION
  Report Type: Spontaneous
  Country: FI (occurrence: FI)
  Receive Date: 20141103
  Receipt Date: 20141103
  Transmission Date: 20150529
  Serious: Yes (Hospitalization)
  Sender: FDA-Public Use
  Company Number: FI-009507513-1410FIN013533

PATIENT
  Age: 65 Year
  Sex: Female

DRUGS (2)
  1. TREXAN (METHOTREXATE) [Concomitant]
     Active Substance: METHOTREXATE SODIUM
     Indication: PSORIASIS
     Dosage: 22.5 MG (9 TABLETS OF 2.5MG), QW
     Route: 048
     Dates: start: 2011, end: 20140926
  2. INTRON A [Suspect]
     Active Substance: INTERFERON ALFA-2B
     Indication: POLYCYTHAEMIA VERA
     Dosage: 3 MILI IU, 4 TIMES A WEEK
     Route: 058
     Dates: start: 2005, end: 20140904

REACTIONS (5)
  - Haemolysis [Unknown]
  - Renal failure [Unknown]
  - Dyspnoea exertional [Unknown]
  - Pulmonary embolism [Unknown]
  - Peripheral swelling [Unknown]

NARRATIVE: CASE EVENT DATE: 20140926
